FAERS Safety Report 10273084 (Version 1)
Quarter: 2014Q1

REPORT INFORMATION
  Report Type: Spontaneous
  Country: US (occurrence: None)
  Receive Date: 20140306
  Receipt Date: 20140306
  Transmission Date: 20141002
  Serious: Yes (Hospitalization, Other)
  Sender: FDA-Public Use
  Company Number: 163-21880-13083474

PATIENT
  Age: 61 Year
  Sex: Male

DRUGS (6)
  1. REVLIMID [Suspect]
     Indication: PLASMA CELL MYELOMA
     Dosage: 25 MG, 14 IN 14 D, PO
     Route: 048
     Dates: start: 20130716
  2. VELCADE (BORTEZOMIB) [Suspect]
     Indication: PLASMA CELL MYELOMA
     Dates: start: 20130620
  3. ZOMETA (ZOLEDRONIC ACID) [Concomitant]
  4. DECADRON (DEXAMETHASONE) [Concomitant]
  5. ACYCLOVIR (ACICLOVIR) [Concomitant]
  6. OXYCODONE (OXYCODONE) [Concomitant]

REACTIONS (3)
  - Neutropenia [None]
  - Thrombocytopenia [None]
  - Diarrhoea [None]
